FAERS Safety Report 8820106 (Version 2)
Quarter: 2012Q4

REPORT INFORMATION
  Report Type: 
  Country: MX (occurrence: MX)
  Receive Date: 20121002
  Receipt Date: 20121101
  Transmission Date: 20130627
  Serious: Yes (Death, Hospitalization)
  Sender: FDA-Public Use
  Company Number: PHHY2012MX085292

PATIENT
  Age: 75 Year
  Sex: Female

DRUGS (3)
  1. RASILEZ [Suspect]
     Indication: HYPERTENSION
     Dosage: 300 mg, daily
     Dates: start: 201205, end: 20121005
  2. CALCORT [Concomitant]
     Indication: LUNG DISORDER
     Dosage: 1 DF, Q72H
     Dates: start: 2011, end: 201210
  3. IMURAN [Concomitant]
     Indication: LUNG DISORDER
     Dosage: 1 DF, daily
     Dates: start: 201206, end: 201210

REACTIONS (4)
  - Cystic fibrosis [Fatal]
  - Cardiac arrest [Fatal]
  - Urinary tract infection [Unknown]
  - Dysuria [Unknown]
